FAERS Safety Report 11533969 (Version 1)
Quarter: 2015Q3

REPORT INFORMATION
  Report Type: Report from Study
  Country: CA (occurrence: CA)
  Receive Date: 20150922
  Receipt Date: 20150922
  Transmission Date: 20151125
  Serious: Yes (Other)
  Sender: FDA-Public Use
  Company Number: CA-PFIZER INC-2015304961

PATIENT
  Age: 29 Year
  Sex: Male
  Weight: 97 kg

DRUGS (3)
  1. EPIRUBICIN HCL [Suspect]
     Active Substance: EPIRUBICIN HYDROCHLORIDE
  2. CISPLATIN. [Suspect]
     Active Substance: CISPLATIN
     Dosage: INJECTION
  3. XELODA [Suspect]
     Active Substance: CAPECITABINE
     Dosage: UNK
     Route: 048

REACTIONS (3)
  - Back pain [Recovered/Resolved]
  - Thrombosis [Recovered/Resolved]
  - Pain in extremity [Recovered/Resolved]
